FAERS Safety Report 6360317-0 (Version None)
Quarter: 2009Q3

REPORT INFORMATION
  Report Type: 
  Country: None (occurrence: None)
  Receive Date: 20090917
  Receipt Date: 20090910
  Transmission Date: 20100115
  Serious: Yes (Other)
  Sender: FDA-Public Use
  Company Number: BF-B.I. PHARMACEUTICALS,INC./RIDGEFIELD-2009-DE-05941GD

PATIENT

DRUGS (5)
  1. TRIOMUNE [Suspect]
     Indication: HIV INFECTION
     Dosage: 400 MG NEVIRAPINE, D4T DOSE OF 30 MG PATIENTS WITH A WEIGHT OF {/=60 KG, A DOSE OF 40 MG FOR A WEIGH
  2. RIFAMPIN/ ISONIAZI/ PYRAZINAMIDE/ETHAMBUTOL [Suspect]
     Indication: TUBERCULOSIS
     Dosage: RIFAMPIN:450 MG FOR PATIENTS WITH A WEIGHT OF {/=50 KG AND 600 MG FOR A WEIGHT } 50 KG
  3. COTRIM [Concomitant]
  4. IRON [Concomitant]
  5. IRON/FOLIC ACID/GROUP B VITAMIN [Concomitant]

REACTIONS (2)
  - IMMUNE RECONSTITUTION SYNDROME [None]
  - PULMONARY TUBERCULOSIS [None]
